FAERS Safety Report 6627692-0 (Version None)
Quarter: 2010Q1

REPORT INFORMATION
  Report Type: 
  Country: None (occurrence: None)
  Receive Date: 20100311
  Receipt Date: 20100226
  Transmission Date: 20100710
  Serious: Yes (Other)
  Sender: FDA-Public Use
  Company Number: PHHY2010US08717

PATIENT
  Sex: Female
  Weight: 89.796 kg

DRUGS (7)
  1. RECLAST [Suspect]
     Indication: OSTEOPOROSIS
     Dosage: 5 MG YEARLY
     Dates: start: 20091215
  2. COUMADIN [Concomitant]
     Dosage: 3 MG, QD
     Route: 048
  3. CALTRATE + D                       /00944201/ [Concomitant]
     Dosage: 600 MG, BID
     Route: 048
  4. ZYRTEC-D 12 HOUR [Concomitant]
     Dosage: 5 MG, QD
     Route: 048
  5. VITAMIN D [Concomitant]
  6. VAZOTAN [Concomitant]
     Dosage: 5 CC BID
  7. NASACORT [Concomitant]
     Dosage: 2 SPRAYS EACH NOSTRIL ONCE A DAY

REACTIONS (27)
  - ACUTE SINUSITIS [None]
  - ARTHRALGIA [None]
  - ASTHENIA [None]
  - DIZZINESS [None]
  - ERYTHEMA [None]
  - INFLUENZA LIKE ILLNESS [None]
  - KIDNEY INFECTION [None]
  - MEAN CELL VOLUME DECREASED [None]
  - MEAN PLATELET VOLUME INCREASED [None]
  - MUSCULAR WEAKNESS [None]
  - NASAL CONGESTION [None]
  - NERVOUSNESS [None]
  - OEDEMA PERIPHERAL [None]
  - OROPHARYNGEAL PAIN [None]
  - PAIN [None]
  - PAIN IN EXTREMITY [None]
  - PARANASAL SINUS HYPERSECRETION [None]
  - PHARYNGITIS [None]
  - POSTNASAL DRIP [None]
  - PROTHROMBIN TIME PROLONGED [None]
  - PYREXIA [None]
  - RASH [None]
  - RASH PRURITIC [None]
  - THROMBOPHLEBITIS [None]
  - UPPER RESPIRATORY TRACT INFECTION [None]
  - URINARY TRACT INFECTION [None]
  - WHITE BLOOD CELL DISORDER [None]
